FAERS Safety Report 5728436-7 (Version None)
Quarter: 2008Q2

REPORT INFORMATION
  Report Type: 
  Country: None (occurrence: None)
  Receive Date: 20080506
  Receipt Date: 20080506
  Transmission Date: 20081010
  Serious: Yes (Other)
  Sender: FDA-Public Use
  Company Number: None

PATIENT
  Age: 5 Year
  Sex: Male
  Weight: 24.5 kg

DRUGS (2)
  1. HEPARIN LOCK FLUSH PRESERVATIVE FREE [Suspect]
     Indication: CENTRAL VENOUS CATHETERISATION
     Dosage: 500 UNITS = 5 ML DAILY IV
     Route: 042
  2. HEPARIN LOCK FLUSH PRESERVATIVE FREE [Suspect]

REACTIONS (4)
  - ABDOMINAL PAIN UPPER [None]
  - COUGH [None]
  - FLATULENCE [None]
  - PHARMACEUTICAL PRODUCT COMPLAINT [None]
